FAERS Safety Report 8954776 (Version 1)
Quarter: 2012Q4

REPORT INFORMATION
  Report Type: 
  Country: AU (occurrence: AU)
  Receive Date: 20121207
  Receipt Date: 20121207
  Transmission Date: 20130627
  Serious: Yes (Death)
  Sender: FDA-Public Use
  Company Number: AU-GLAXOSMITHKLINE-B0849610A

PATIENT
  Sex: Male

DRUGS (1)
  1. VENTOLIN INHALER [Suspect]
     Indication: ASTHMA
     Route: 055

REACTIONS (3)
  - Death [Fatal]
  - Asthma [Unknown]
  - Expired drug administered [Unknown]
